FAERS Safety Report 9867529 (Version 1)
Quarter: 2014Q1

REPORT INFORMATION
  Report Type: Spontaneous
  Country: US (occurrence: None)
  Receive Date: 20140131
  Receipt Date: 20140131
  Transmission Date: 20141002
  Serious: Yes (Death, Hospitalization)
  Sender: FDA-Public Use
  Company Number: 152508

PATIENT
  Age: 73 Year
  Sex: Male

DRUGS (1)
  1. CLINDAMYCIN PHOSPHATE [Suspect]
     Indication: PNEUMONIA
     Route: 042

REACTIONS (3)
  - Acute hepatic failure [None]
  - Encephalopathy [None]
  - Acute respiratory distress syndrome [None]
